FAERS Safety Report 14666601 (Version 3)
Quarter: 2018Q3

REPORT INFORMATION
  Report Type: Spontaneous
  Country: US (occurrence: US)
  Receive Date: 20180322
  Receipt Date: 20180928
  Transmission Date: 20181010
  Serious: No
  Sender: FDA-Public Use
  Company Number: US-AMGEN-USASP2018035821

PATIENT
  Age: 75 Year
  Sex: Male
  Weight: 108.39 kg

DRUGS (1)
  1. PROLIA [Suspect]
     Active Substance: DENOSUMAB
     Indication: BONE LOSS
     Dosage: 60 MG, Q6MO
     Route: 058
     Dates: start: 20171213

REACTIONS (2)
  - Tooth discolouration [Unknown]
  - Pain in jaw [Unknown]

NARRATIVE: CASE EVENT DATE: 2017
